FAERS Safety Report 5985067-1 (Version None)
Quarter: 2008Q4

REPORT INFORMATION
  Report Type: 
  Country: None (occurrence: None)
  Receive Date: 20081208
  Receipt Date: 20080522
  Transmission Date: 20090506
  Serious: Yes (Other)
  Sender: FDA-Public Use
  Company Number: US-AMGEN-QUU281884

PATIENT
  Sex: Female

DRUGS (3)
  1. ENBREL [Suspect]
     Indication: RHEUMATOID ARTHRITIS
     Route: 058
  2. ENBREL [Suspect]
     Indication: PSORIATIC ARTHROPATHY
  3. ENBREL [Suspect]
     Indication: PSORIASIS

REACTIONS (8)
  - ASTHENIA [None]
  - CONVULSION [None]
  - FALL [None]
  - FATIGUE [None]
  - HYPERTENSION [None]
  - INFECTION [None]
  - MULTIPLE FRACTURES [None]
  - ORAL INFECTION [None]
